FAERS Safety Report 9251481 (Version 4)
Quarter: 2014Q1

REPORT INFORMATION
  Report Type: Spontaneous
  Country: US (occurrence: US)
  Receive Date: 20130424
  Receipt Date: 20140226
  Transmission Date: 20141002
  Serious: Yes (Hospitalization, Disabling, Other)
  Sender: FDA-Public Use
  Company Number: US-ASTRAZENECA-2013SE27468

PATIENT
  Age: 27 Year
  Sex: Male
  Weight: 90.7 kg

DRUGS (31)
  1. NEXIUM [Suspect]
     Indication: GASTROOESOPHAGEAL REFLUX DISEASE
     Route: 048
     Dates: start: 2005, end: 2012
  2. NEXIUM [Suspect]
     Indication: GASTROOESOPHAGEAL REFLUX DISEASE
     Route: 048
     Dates: start: 2005, end: 2012
  3. NEXIUM [Suspect]
     Indication: GASTROOESOPHAGEAL REFLUX DISEASE
     Route: 048
  4. NEXIUM [Suspect]
     Indication: GASTROOESOPHAGEAL REFLUX DISEASE
     Route: 048
  5. NEXIUM [Suspect]
     Indication: GASTROOESOPHAGEAL REFLUX DISEASE
     Route: 048
     Dates: start: 20090727
  6. NEXIUM [Suspect]
     Indication: GASTROOESOPHAGEAL REFLUX DISEASE
     Route: 048
     Dates: start: 20090727
  7. NEXIUM [Suspect]
     Indication: GASTROOESOPHAGEAL REFLUX DISEASE
     Route: 048
     Dates: start: 2005, end: 2013
  8. NEXIUM [Suspect]
     Indication: GASTROOESOPHAGEAL REFLUX DISEASE
     Route: 048
     Dates: start: 2005, end: 2013
  9. PRILOSEC [Suspect]
     Indication: GASTROOESOPHAGEAL REFLUX DISEASE
     Route: 048
  10. PRILOSEC [Suspect]
     Indication: GASTROOESOPHAGEAL REFLUX DISEASE
     Route: 048
     Dates: start: 20091021
  11. PRILOSEC [Suspect]
     Indication: GASTROOESOPHAGEAL REFLUX DISEASE
     Route: 048
     Dates: start: 20130211
  12. SEROQUEL [Concomitant]
     Indication: SLEEP DISORDER
     Route: 048
  13. SEROQUEL [Concomitant]
     Indication: SLEEP DISORDER
     Route: 048
  14. TOPROL [Concomitant]
     Indication: HYPERTENSION
     Route: 048
  15. NEURONTIN [Concomitant]
  16. SYNTHROID [Concomitant]
     Dosage: 112 MG TWO EVERY DAY
  17. SYNTHROID [Concomitant]
     Dates: start: 20110408
  18. ASPIRIN [Concomitant]
  19. B12 [Concomitant]
  20. TYLENOL [Concomitant]
  21. NYQUIL [Concomitant]
  22. TRAZODONE [Concomitant]
  23. NORVASC [Concomitant]
  24. PAXIL [Concomitant]
  25. ZANTAC [Concomitant]
     Dates: start: 2011
  26. WELLBUTRIN [Concomitant]
  27. SIMVASTATIN [Concomitant]
  28. IBUPROFEN [Concomitant]
  29. TRICOR [Concomitant]
  30. PROTONIX [Concomitant]
     Route: 048
     Dates: start: 20120628
  31. HYDROCHLOROTHIAZIDE [Concomitant]
     Route: 048
     Dates: start: 20091022

REACTIONS (17)
  - Anxiety [Unknown]
  - Thyroid cancer [Unknown]
  - Lymphoma [Unknown]
  - Musculoskeletal discomfort [Unknown]
  - Depression [Unknown]
  - Osteonecrosis [Unknown]
  - Osteoporosis [Unknown]
  - Radius fracture [Unknown]
  - Bone disorder [Unknown]
  - Ankle fracture [Unknown]
  - Chronic obstructive pulmonary disease [Unknown]
  - Upper limb fracture [Unknown]
  - Humerus fracture [Unknown]
  - Lower limb fracture [Unknown]
  - Panic attack [Unknown]
  - Androgen deficiency [Unknown]
  - Fall [Unknown]
